FAERS Safety Report 9826909 (Version 1)
Quarter: 2014Q1

REPORT INFORMATION
  Report Type: Spontaneous
  Country: US (occurrence: US)
  Receive Date: 20140117
  Receipt Date: 20140117
  Transmission Date: 20141002
  Serious: No
  Sender: FDA-Public Use
  Company Number: US-GLAXOSMITHKLINE-A1016397A

PATIENT
  Age: 66 Year
  Sex: Male

DRUGS (9)
  1. PROMACTA [Suspect]
     Indication: IMMUNE THROMBOCYTOPENIC PURPURA
     Dosage: 50MG PER DAY
     Route: 048
     Dates: start: 20110907
  2. ASPIRIN [Concomitant]
  3. LOVAZA [Concomitant]
  4. SIMVASTATIN [Concomitant]
  5. GLIMEPIRIDE [Concomitant]
  6. OMEPRAZOLE [Concomitant]
  7. IMDUR [Concomitant]
  8. COREG [Concomitant]
  9. LEVEMIR [Concomitant]

REACTIONS (4)
  - Pruritus [Not Recovered/Not Resolved]
  - Abdominal pain upper [Not Recovered/Not Resolved]
  - Asthenia [Not Recovered/Not Resolved]
  - Fatigue [Not Recovered/Not Resolved]
